FAERS Safety Report 16047133 (Version 2)
Quarter: 2019Q2

REPORT INFORMATION
  Report Type: Report from Study
  Country: US (occurrence: US)
  Receive Date: 20190307
  Receipt Date: 20190402
  Transmission Date: 20190711
  Serious: Yes (Hospitalization)
  Sender: FDA-Public Use
  Company Number: US-BAXTER-2019BAX004433

PATIENT
  Age: 71 Year
  Sex: Female
  Weight: 74 kg

DRUGS (42)
  1. PROMETHAZINE [Concomitant]
     Active Substance: PROMETHAZINE\PROMETHAZINE HYDROCHLORIDE
     Indication: NAUSEA
     Dosage: PRN
     Route: 048
     Dates: start: 20170923
  2. CARAFATE [Concomitant]
     Active Substance: SUCRALFATE
     Indication: GASTROOESOPHAGEAL REFLUX DISEASE
     Dosage: 1GM/10 ML SUSPENSION
     Route: 048
     Dates: start: 20180403
  3. CETIRIZINE [Concomitant]
     Active Substance: CETIRIZINE HYDROCHLORIDE
     Indication: SEASONAL ALLERGY
     Dosage: PRN
     Route: 048
     Dates: start: 20190118
  4. PONATINIB [Concomitant]
     Active Substance: PONATINIB
     Indication: ACUTE LYMPHOCYTIC LEUKAEMIA
     Route: 048
  5. LOSARTAN. [Concomitant]
     Active Substance: LOSARTAN
     Indication: HYPERTENSION
     Route: 048
     Dates: start: 20190118
  6. HYDROCORTISONE NA SUCCINATE PF [Concomitant]
     Route: 037
     Dates: start: 20190129, end: 20190129
  7. VINCRISTINE SULFATE. [Suspect]
     Active Substance: VINCRISTINE SULFATE
     Indication: B PRECURSOR TYPE ACUTE LEUKAEMIA
     Dosage: MINI-HYPER CVD CHEMOTHERAPY
     Route: 065
     Dates: start: 201709, end: 201805
  8. VINCRISTINE SULFATE. [Suspect]
     Active Substance: VINCRISTINE SULFATE
     Dosage: POMP MAINTENANCE CHEMOTHERAPY
     Route: 065
     Dates: start: 201805, end: 201901
  9. PREDNISONE. [Suspect]
     Active Substance: PREDNISONE
     Indication: B PRECURSOR TYPE ACUTE LEUKAEMIA
     Dosage: POMP MAINTENANCE CHEMOTHERAPY
     Route: 065
     Dates: start: 201805, end: 201901
  10. DEXAMETHASONE. [Concomitant]
     Active Substance: DEXAMETHASONE
     Indication: PREMEDICATION
     Dosage: MINI-HYPER CVD CHEMOTHERAPY
     Route: 065
     Dates: start: 201709, end: 201805
  11. INSULIN LISPRO [Concomitant]
     Active Substance: INSULIN LISPRO
     Indication: DIABETES MELLITUS
     Dosage: 0-20 UNITS; TID
     Route: 058
     Dates: start: 20170523
  12. PROCHLORPERAZINE. [Concomitant]
     Active Substance: PROCHLORPERAZINE
     Indication: NAUSEA
     Dosage: PRN (AS NEEDED)
     Route: 048
     Dates: start: 20171009
  13. HYDROCHLOROTHIAZIDE. [Concomitant]
     Active Substance: HYDROCHLOROTHIAZIDE
     Indication: HYPERTENSION
     Route: 048
     Dates: start: 20181106
  14. INOTUZUMAB OZOGAMICIN [Suspect]
     Active Substance: INOTUZUMAB OZOGAMICIN
     Indication: B PRECURSOR TYPE ACUTE LEUKAEMIA
     Dosage: 0.8 MG/M2 ON DAY 1, 0.5 MG/M2 ON DAY 8 AND DAY 15; TOTAL DOSE ADMINISTERED THIS COURSE: 1.44 MG
     Route: 042
     Dates: start: 20190124
  15. PREDNISONE. [Suspect]
     Active Substance: PREDNISONE
     Dosage: ON DAY1-5; TOTAL DOSE ADMINISTERED THIS COURSE: 100 MG
     Route: 048
     Dates: start: 20190124, end: 20190128
  16. SPRYCEL [Concomitant]
     Active Substance: DASATINIB
     Dosage: MINI-HYPER CVD CHEMOTHERAPY; BMS-354825
     Route: 065
     Dates: start: 201709, end: 201805
  17. ACETAMINOPHEN. [Concomitant]
     Active Substance: ACETAMINOPHEN
     Indication: PAIN
     Dosage: AS NEEDED (PRN)
     Route: 048
     Dates: start: 20170707
  18. FAMOTIDINE. [Concomitant]
     Active Substance: FAMOTIDINE
     Indication: GASTROOESOPHAGEAL REFLUX DISEASE
     Route: 048
     Dates: start: 20190124
  19. VINCRISTINE SULFATE. [Suspect]
     Active Substance: VINCRISTINE SULFATE
     Dosage: 1.4 MG/M2, ON DAY 1; TOTAL DOSE ADMINISTERED THIS COURSE: 2 MG
     Route: 042
     Dates: start: 20190124
  20. MERCAPTOPURINE. [Concomitant]
     Active Substance: MERCAPTOPURINE
     Indication: PRODUCT USED FOR UNKNOWN INDICATION
     Dosage: POMP MAINTENANCE CHEMOTHERAPY
     Route: 065
     Dates: start: 201805, end: 201901
  21. METHOTREXATE. [Concomitant]
     Active Substance: METHOTREXATE
     Indication: PRODUCT USED FOR UNKNOWN INDICATION
     Dosage: MINI-HYPER CVD CHEMOTHERAPY
     Route: 065
     Dates: start: 201709, end: 201805
  22. METHOTREXATE. [Concomitant]
     Active Substance: METHOTREXATE
     Dosage: POMP MAINTENANCE CHEMOTHERAPY
     Route: 065
     Dates: start: 201805, end: 201901
  23. TRIAMCINOLONE [Concomitant]
     Active Substance: TRIAMCINOLONE
     Indication: SEASONAL ALLERGY
     Dosage: STRENGTH: 55 MCG/ACT INHALER; DOSE: 1 SPRAY PRN
     Route: 055
     Dates: start: 20171009
  24. DEXAMETHASONE. [Concomitant]
     Active Substance: DEXAMETHASONE
     Indication: PRODUCT USED FOR UNKNOWN INDICATION
     Dosage: INDUCTION THERAPY;
     Route: 065
     Dates: start: 201705, end: 201709
  25. METHYLPREDNISOLONE. [Concomitant]
     Active Substance: METHYLPREDNISOLONE
     Indication: PRODUCT USED FOR UNKNOWN INDICATION
     Dosage: MINI-HYPER CVD CHEMOTHERAPY
     Route: 065
     Dates: start: 201709, end: 201805
  26. SULFAMETHOXAZOLE/TRIMETHOPRIM [Concomitant]
     Active Substance: SULFAMETHOXAZOLE\TRIMETHOPRIM
     Indication: INFECTION PROPHYLAXIS
     Dosage: 800-160 MG PER TABLET
     Route: 048
     Dates: start: 20180508
  27. ACYCLOVIR. [Concomitant]
     Active Substance: ACYCLOVIR
     Indication: INFECTION PROPHYLAXIS
     Route: 048
     Dates: start: 20181106
  28. DIPHENHYDRAMINE. [Concomitant]
     Active Substance: DIPHENHYDRAMINE
     Indication: PREMEDICATION
     Dosage: PRN
     Route: 048
     Dates: start: 20190124
  29. CYCLOPHOSPHAMIDE FOR INJECTION, USP [Suspect]
     Active Substance: CYCLOPHOSPHAMIDE
     Indication: B PRECURSOR TYPE ACUTE LEUKAEMIA
     Dosage: MINI-HYPER CVD CHEMOTHERAPY
     Route: 065
     Dates: start: 201709, end: 201805
  30. CYCLOPHOSPHAMIDE FOR INJECTION, USP [Suspect]
     Active Substance: CYCLOPHOSPHAMIDE
     Dosage: 750 MG/M2 ON DAY 1; TOTAL DOSE ADMINISTERED THIS COURSE: 1350 MG
     Route: 042
     Dates: start: 20190124
  31. ACETAMINOPHEN. [Concomitant]
     Active Substance: ACETAMINOPHEN
     Indication: PREMEDICATION
     Dosage: PRN (AS NEEDED)
     Route: 048
     Dates: start: 20190124
  32. SPRYCEL [Concomitant]
     Active Substance: DASATINIB
     Indication: PRODUCT USED FOR UNKNOWN INDICATION
     Dosage: INDUCTION THERAPY; BMS-354825
     Route: 065
     Dates: start: 201705, end: 201709
  33. RITUXIMAB. [Concomitant]
     Active Substance: RITUXIMAB
     Indication: PRODUCT USED FOR UNKNOWN INDICATION
     Dosage: MINI-HYPER CVD CHEMOTHERAPY; MOAB C2B8 ANTI CD20, CHIMERIC
     Route: 065
     Dates: start: 201709, end: 201805
  34. VITAMIN E [Concomitant]
     Active Substance: .ALPHA.-TOCOPHEROL
     Indication: PROPHYLAXIS
     Route: 048
     Dates: start: 20170427
  35. INSULIN GLARGINE [Concomitant]
     Active Substance: INSULIN GLARGINE
     Indication: DIABETES MELLITUS
     Dosage: 28 UNITS; VIAL;QPM
     Route: 058
     Dates: start: 20170717
  36. AMLODIPINE [Concomitant]
     Active Substance: AMLODIPINE BESYLATE
     Indication: HYPERTENSION
     Route: 048
     Dates: start: 20171018
  37. URSODIOL. [Concomitant]
     Active Substance: URSODIOL
     Indication: BLOOD CHOLESTEROL INCREASED
     Route: 048
     Dates: start: 20181120
  38. HYDROCORTISONE NA SUCCINATE PF [Concomitant]
     Indication: PREMEDICATION
     Dosage: PRN
     Route: 042
     Dates: start: 20190124
  39. PALONOSETRON. [Concomitant]
     Active Substance: PALONOSETRON HYDROCHLORIDE
     Indication: PROPHYLAXIS OF NAUSEA AND VOMITING
     Route: 042
     Dates: start: 20190124, end: 20190124
  40. ALLOPURINOL. [Concomitant]
     Active Substance: ALLOPURINOL
     Indication: ACUTE LYMPHOCYTIC LEUKAEMIA
     Route: 048
     Dates: start: 20190129
  41. DEXAMETHASONE. [Concomitant]
     Active Substance: DEXAMETHASONE
     Dosage: PRN
     Route: 048
     Dates: start: 20190124
  42. CYTARABINE. [Concomitant]
     Active Substance: CYTARABINE
     Indication: PRODUCT USED FOR UNKNOWN INDICATION
     Dosage: MINI-HYPER CVD CHEMOTHERAPY
     Route: 065
     Dates: start: 201709, end: 201805

REACTIONS (2)
  - Subdural haematoma [Not Recovered/Not Resolved]
  - Fatigue [Recovered/Resolved]

NARRATIVE: CASE EVENT DATE: 20190131
